FAERS Safety Report 8211385-2 (Version None)
Quarter: 2012Q1

REPORT INFORMATION
  Report Type: 
  Country: None (occurrence: None)
  Receive Date: 20120229
  Receipt Date: 20110128
  Transmission Date: 20120608
  Serious: Yes (Other)
  Sender: FDA-Public Use
  Company Number: US-JNJFOC-20110201529

PATIENT
  Age: 52 Year
  Sex: Female
  Weight: 95.2554 kg

DRUGS (5)
  1. LORTAB [Concomitant]
  2. MOTRIN IB [Suspect]
     Indication: ARTHRALGIA
  3. CELEBREX [Concomitant]
  4. LISINOPRIL [Concomitant]
  5. NAPROXEN [Suspect]
     Indication: PRODUCT USED FOR UNKNOWN INDICATION

REACTIONS (2)
  - ABDOMINAL PAIN UPPER [None]
  - HAEMORRHAGE [None]
